FAERS Safety Report 19010022 (Version 1)
Quarter: 2021Q1

REPORT INFORMATION
  Report Type: Not Available
  Country: None (occurrence: None)
  Receive Date: 20210315
  Receipt Date: 20210315
  Transmission Date: 20210420
  Serious: No
  Sender: FDA-Public Use
  Company Number: US-AKORN-162394

PATIENT
  Age: 18 Year
  Sex: Male

DRUGS (1)
  1. MYORISAN [Suspect]
     Active Substance: ISOTRETINOIN

REACTIONS (5)
  - Dry eye [Unknown]
  - Lip dry [Unknown]
  - Dry skin [Unknown]
  - Nasal dryness [Unknown]
  - Off label use [Recovered/Resolved]
